FAERS Safety Report 15853163 (Version 1)
Quarter: 2019Q1

REPORT INFORMATION
  Report Type: Report from Study
  Country: ES (occurrence: ES)
  Receive Date: 20190122
  Receipt Date: 20190122
  Transmission Date: 20190417
  Serious: Yes (Hospitalization)
  Sender: FDA-Public Use
  Company Number: ES-PFIZER INC-2019022187

PATIENT
  Age: 93 Year
  Sex: Male

DRUGS (4)
  1. AMOXICILLIN CLAVULANIC ACID [Concomitant]
     Active Substance: AMOXICILLIN\CLAVULANIC ACID
     Dosage: 1 G, 3X/DAY(EVERY 8 HOURS)
     Route: 042
     Dates: start: 20180223, end: 20180226
  2. FUROSEMIDE. [Suspect]
     Active Substance: FUROSEMIDE
     Dosage: 20 MG, 3X/DAY (1-1-1)
     Route: 042
     Dates: start: 20180220, end: 20180226
  3. ENALAPRIL [Suspect]
     Active Substance: ENALAPRIL
     Dosage: 5 MG, 1X/DAY
     Route: 048
     Dates: start: 20180222, end: 20180223
  4. EPLERENONE. [Suspect]
     Active Substance: EPLERENONE
     Dosage: 25 MG, 1X/DAY (1-0-0)
     Route: 048
     Dates: start: 20180220, end: 20180226

REACTIONS (1)
  - Acute kidney injury [Recovering/Resolving]

NARRATIVE: CASE EVENT DATE: 20180226
